FAERS Safety Report 8612058-4 (Version None)
Quarter: 2012Q3

REPORT INFORMATION
  Report Type: 
  Country: None (occurrence: None)
  Receive Date: 20120822
  Receipt Date: 20120808
  Transmission Date: 20120928
  Serious: Yes (Hospitalization)
  Sender: FDA-Public Use
  Company Number: JP-VERTEX PHARMACEUTICAL INC.-2012-019682

PATIENT
  Age: 52 Year
  Sex: Male

DRUGS (15)
  1. VX-950 [Suspect]
     Indication: HEPATITIS C
     Dosage: 2250 MG, QD
     Route: 048
     Dates: start: 20120208
  2. RIBAVIRIN [Concomitant]
     Dosage: 600 MG, QD
     Route: 048
     Dates: end: 20120529
  3. PEGINTRON                          /01543001/ [Concomitant]
     Indication: HEPATITIS C
     Dosage: 1.5 A?G/KG, UNK
     Route: 058
     Dates: start: 20120208, end: 20120214
  4. PEGINTRON                          /01543001/ [Concomitant]
     Dosage: 0.75 A?G/KG, UNK
     Route: 058
     Dates: start: 20120215, end: 20120510
  5. POSTERISAN                         /00028601/ [Concomitant]
     Dosage: UNK, PRN
     Route: 061
     Dates: end: 20120730
  6. RIBAVIRIN [Concomitant]
     Dosage: 800 MG, QD
     Route: 048
     Dates: start: 20120530, end: 20120717
  7. PEGINTRON                          /01543001/ [Concomitant]
     Dosage: 1.5 A?G/KG, UNK
     Dates: start: 20120606, end: 20120620
  8. PEGINTRON                          /01543001/ [Concomitant]
     Dosage: .75 A?G/KG, UNK
     Route: 058
     Dates: start: 20120621, end: 20120626
  9. RIBAVIRIN [Concomitant]
     Indication: HEPATITIS C
     Dosage: 800 MG, QD
     Route: 048
     Dates: start: 20120208
  10. MAGMITT [Concomitant]
     Dosage: 1500 MG, QD
     Dates: end: 20120730
  11. VX-950 [Suspect]
     Dosage: 1500 MG, QD
     Route: 048
     Dates: start: 20120404, end: 20120501
  12. PEGINTRON                          /01543001/ [Concomitant]
     Dosage: 1.5 A?G/KG, UNK
     Route: 058
     Dates: start: 20120511, end: 20120529
  13. PEGINTRON                          /01543001/ [Concomitant]
     Dosage: .75 A?G/KG, UNK
     Route: 058
     Dates: start: 20120530, end: 20120605
  14. PEGINTRON                          /01543001/ [Concomitant]
     Dosage: 1.5 A?G/KG, UNK
     Route: 058
     Dates: start: 20120627, end: 20120717
  15. PEGINTRON                          /01543001/ [Concomitant]
     Dosage: UNK

REACTIONS (1)
  - AGRANULOCYTOSIS [None]
